FAERS Safety Report 7483337-1 (Version None)
Quarter: 2011Q2

REPORT INFORMATION
  Report Type: 
  Country: None (occurrence: None)
  Receive Date: 20110517
  Receipt Date: 20110406
  Transmission Date: 20111010
  Serious: Yes (Hospitalization, Other)
  Sender: FDA-Public Use
  Company Number: US-BAYER-2011-011314

PATIENT
  Age: 41 Year
  Sex: Female
  Weight: 52.154 kg

DRUGS (5)
  1. TEA, GREEN [Concomitant]
  2. DIGESTIVE AID TABLET [Concomitant]
  3. YAZ [Suspect]
     Indication: ACNE
     Dosage: UNK
     Dates: start: 20090901, end: 20100101
  4. YASMIN [Suspect]
     Indication: ACNE
  5. DROSPIRENONE AND ETHINYL ESTRADIOL [Suspect]
     Indication: ACNE

REACTIONS (7)
  - PANCREATITIS [None]
  - INJURY [None]
  - LIVER INJURY [None]
  - PANCREATIC DISORDER [None]
  - GALLBLADDER DISORDER [None]
  - PAIN [None]
  - CHOLECYSTITIS [None]
